FAERS Safety Report 10029168 (Version 2)
Quarter: 2014Q1

REPORT INFORMATION
  Report Type: Report from Study
  Country: DE (occurrence: DE)
  Receive Date: 20140321
  Receipt Date: 20140324
  Transmission Date: 20141002
  Serious: Yes (Life-Threatening, Disabling, Other)
  Sender: FDA-Public Use
  Company Number: DK-ASTRAZENECA-2014SE19639

PATIENT
  Age: 71 Year
  Sex: Female

DRUGS (9)
  1. TICAGRELOR [Suspect]
     Indication: THROMBOSIS PROPHYLAXIS
     Route: 048
  2. ACETYLSALICYLIC ACID [Suspect]
     Indication: THROMBOSIS PROPHYLAXIS
     Route: 065
  3. BIVALIRUDIN [Concomitant]
     Dosage: 0.75 MG/KG BOLUS FOLLOWED BY 1.75 MG/KG/H
     Dates: start: 20140228, end: 20140228
  4. RAMIPRIL [Concomitant]
     Dosage: 2.5 MG
  5. HYDROCHLOROTHIAZIDE [Concomitant]
     Dosage: 12.5 MG
  6. ATORVASTATIN [Concomitant]
     Dosage: 10 MG
  7. METOPROLOL [Concomitant]
     Dosage: 95 MG
  8. PANTOPRAZOLE [Concomitant]
     Dosage: 40 MG
  9. ENOXAPARIN [Concomitant]
     Dosage: 0.5 ML

REACTIONS (2)
  - Coronary artery dissection [Recovered/Resolved]
  - Atrial fibrillation [Recovered/Resolved]
